FAERS Safety Report 20403713 (Version 1)
Quarter: 2022Q1

REPORT INFORMATION
  Report Type: Spontaneous
  Country: US (occurrence: US)
  Receive Date: 20220131
  Receipt Date: 20220131
  Transmission Date: 20220424
  Serious: No
  Sender: FDA-Public Use
  Company Number: US-SA-SAC20220126000084

PATIENT
  Age: 38 Year
  Sex: Female

DRUGS (1)
  1. DUPIXENT [Suspect]
     Active Substance: DUPILUMAB
     Indication: Dermatitis atopic
     Dosage: 300 MG, QOW
     Route: 058

REACTIONS (8)
  - Rash [Unknown]
  - Pruritus [Unknown]
  - Insomnia [Unknown]
  - Rash macular [Unknown]
  - Rash [Unknown]
  - Feeling hot [Unknown]
  - Alcohol problem [Unknown]
  - Drug ineffective [Unknown]
